FAERS Safety Report 10067453 (Version 1)
Quarter: 2014Q2

REPORT INFORMATION
  Report Type: Spontaneous
  Country: None (occurrence: None)
  Receive Date: 20140407
  Receipt Date: 20140407
  Transmission Date: 20141212
  Serious: Yes (Hospitalization)
  Sender: FDA-Public Use
  Company Number: 2014P1002770

PATIENT
  Age: 69 Year
  Sex: Male

DRUGS (8)
  1. CIPROFLOXACIN TABLETS USP 250MG [Suspect]
     Indication: URINARY TRACT INFECTION
     Dates: start: 20120405
  2. TRIMETHOPRIM [Suspect]
     Indication: URINARY TRACT INFECTION
     Dates: start: 20120401
  3. WARFARIN SODIUM [Suspect]
  4. RAMIPRIL [Suspect]
  5. DIGOXIN [Suspect]
     Indication: ATRIAL FIBRILLATION
     Dates: start: 20120409, end: 20120413
  6. ATORVASTATIN [Concomitant]
  7. FIMASTERIDE [Concomitant]
  8. ATENOLOL [Concomitant]

REACTIONS (3)
  - Nausea [None]
  - Vomiting [None]
  - Renal failure acute [None]
